FAERS Safety Report 14977243 (Version 1)
Quarter: 2018Q2

REPORT INFORMATION
  Report Type: Spontaneous
  Country: DE (occurrence: DE)
  Receive Date: 20180606
  Receipt Date: 20180606
  Transmission Date: 20180711
  Serious: Yes (Hospitalization)
  Sender: FDA-Public Use
  Company Number: DE-TEVA-2018-DE-902373

PATIENT
  Age: 82 Year
  Sex: Male

DRUGS (10)
  1. POTASSIUM CHLORIDE, MAGNESIUM [Concomitant]
     Dosage: 2 DOSAGE FORMS DAILY; 1-0-1-0
  2. ZOLPIDEM [Concomitant]
     Active Substance: ZOLPIDEM\ZOLPIDEM TARTRATE
     Dosage: 10 MILLIGRAM DAILY; 10 MG, 0-0-0-1
  3. CABERGOLIN [Concomitant]
     Active Substance: CABERGOLINE
     Dosage: 0-0-0-1.5
  4. ETORICOXIB [Suspect]
     Active Substance: ETORICOXIB
     Dosage: 1 DOSAGE FORMS DAILY; 1-0-0-0
  5. BISOPROLOL [Suspect]
     Active Substance: BISOPROLOL
     Dosage: 5 MILLIGRAM DAILY; 5 MG, 1-0-0-0
  6. NALOXONE, TILIDINE [Concomitant]
     Dosage: 2 DOSAGE FORMS DAILY; 50|4 MG, 1-0-0-1
  7. AMINOPHYLLINE. [Concomitant]
     Active Substance: AMINOPHYLLINE
     Dosage: 1 DOSAGE FORMS DAILY; 1-0-0-0
  8. PANTOPRAZOL [Concomitant]
     Active Substance: PANTOPRAZOLE SODIUM
     Dosage: 40 MILLIGRAM DAILY; 40 MG, 1-0-0-0
  9. GLUTAMINE [Concomitant]
     Active Substance: GLUTAMINE
     Dosage: 2 DOSAGE FORMS DAILY; 1-1-0-0
  10. RAMIPRIL. [Concomitant]
     Active Substance: RAMIPRIL
     Dosage: 5 MILLIGRAM DAILY; 5 MG, 1-0-0-0

REACTIONS (5)
  - Drug prescribing error [Unknown]
  - Fatigue [Unknown]
  - Contraindicated product administered [Unknown]
  - Nausea [Unknown]
  - General physical health deterioration [Unknown]
